FAERS Safety Report 13518374 (Version 1)
Quarter: 2017Q2

REPORT INFORMATION
  Report Type: Spontaneous
  Country: US (occurrence: US)
  Receive Date: 20170505
  Receipt Date: 20170505
  Transmission Date: 20170830
  Serious: Yes (Other)
  Sender: FDA-Public Use
  Company Number: None

PATIENT
  Age: 39 Year
  Sex: Male
  Weight: 153 kg

DRUGS (10)
  1. MULTI VIT. [Concomitant]
  2. BAYER ASPIRIN [Concomitant]
     Active Substance: ASPIRIN
  3. TRULICITY [Suspect]
     Active Substance: DULAGLUTIDE
     Indication: TYPE 2 DIABETES MELLITUS
     Dosage: 1 INJECTION PER WEEK INJECTED IN ABDOMEN?
     Dates: start: 20170405, end: 20170412
  4. VALSARTAN. [Concomitant]
     Active Substance: VALSARTAN
  5. QUINAPRIL. [Concomitant]
     Active Substance: QUINAPRIL
  6. PANTOPRAZOLE [Concomitant]
     Active Substance: PANTOPRAZOLE
  7. INVOKANA [Concomitant]
     Active Substance: CANAGLIFLOZIN
  8. ATORVASTAIN [Concomitant]
     Active Substance: ATORVASTATIN
  9. ANDROGEL [Concomitant]
     Active Substance: TESTOSTERONE
  10. METFORMIN [Concomitant]
     Active Substance: METFORMIN HYDROCHLORIDE

REACTIONS (4)
  - Dysgeusia [None]
  - Vomiting [None]
  - Nausea [None]
  - Diarrhoea [None]

NARRATIVE: CASE EVENT DATE: 20170505
